FAERS Safety Report 6649740-4 (Version None)
Quarter: 2010Q1

REPORT INFORMATION
  Report Type: 
  Country: None (occurrence: None)
  Receive Date: 20100324
  Receipt Date: 20100324
  Transmission Date: 20100710
  Serious: Yes (Hospitalization)
  Sender: FDA-Public Use
  Company Number: None

PATIENT
  Age: 60 Year
  Sex: Male
  Weight: 79.4 kg

DRUGS (2)
  1. FLUDROCORTISONE [Suspect]
     Indication: HORMONE REPLACEMENT THERAPY
     Dosage: 0.1 MG EVERY DAY PO
     Route: 048
     Dates: start: 20091014, end: 20091207
  2. GABAPENTIN [Suspect]
     Indication: PAIN
     Dosage: 100 MG TID PO
     Route: 048
     Dates: start: 20091024, end: 20091207

REACTIONS (1)
  - OEDEMA PERIPHERAL [None]
